FAERS Safety Report 4578049-8 (Version None)
Quarter: 2005Q1

REPORT INFORMATION
  Report Type: 
  Country: None (occurrence: None)
  Receive Date: 20050211
  Receipt Date: 20050203
  Transmission Date: 20050727
  Serious: Yes (Hospitalization, Other)
  Sender: FDA-Public Use
  Company Number: FR-ABBOTT-05P-056-0289547-00

PATIENT
  Age: 56 Year
  Sex: Female

DRUGS (3)
  1. LIPANTHYL TABLETS [Suspect]
     Indication: HYPERTRIGLYCERIDAEMIA
  2. LIPANTHYL TABLETS [Suspect]
     Route: 048
     Dates: start: 20041215, end: 20050117
  3. NOVOTHYRAL [Concomitant]
     Indication: DRUG USE FOR UNKNOWN INDICATION

REACTIONS (7)
  - ANOREXIA [None]
  - CATARACT [None]
  - CHOLANGITIS [None]
  - CHOLECYSTITIS [None]
  - FATIGUE [None]
  - HEPATITIS [None]
  - JAUNDICE [None]
